FAERS Safety Report 22313956 (Version 3)
Quarter: 2023Q2

REPORT INFORMATION
  Report Type: Report from Study
  Country: CA (occurrence: CA)
  Receive Date: 20230512
  Receipt Date: 20230623
  Transmission Date: 20230722
  Serious: Yes (Death)
  Sender: FDA-Public Use
  Company Number: CA-BAYER-2023A065759

PATIENT
  Sex: Female

DRUGS (4)
  1. EYLEA [Suspect]
     Active Substance: AFLIBERCEPT
     Indication: Age-related macular degeneration
     Dosage: 2 MG, SOLUTION FOR INJECTION, 40MG/ML
     Dates: start: 20170207, end: 20170207
  2. EYLEA [Suspect]
     Active Substance: AFLIBERCEPT
     Dosage: 2 MG, SOLUTION FOR INJECTION, 40MG/ML
     Dates: start: 20170223, end: 20170223
  3. EYLEA [Suspect]
     Active Substance: AFLIBERCEPT
     Dosage: 2 MG, SOLUTION FOR INJECTION, 40MG/ML
     Dates: start: 20170309, end: 20170309
  4. EYLEA [Suspect]
     Active Substance: AFLIBERCEPT
     Dosage: 2 MG, SOLUTION FOR INJECTION, 40MG/ML
     Dates: start: 20170504, end: 20170504

REACTIONS (1)
  - Death [Fatal]
